FAERS Safety Report 4797485-8 (Version None)
Quarter: 2005Q4

REPORT INFORMATION
  Report Type: 
  Country: None (occurrence: None)
  Receive Date: 20051013
  Receipt Date: 20051003
  Transmission Date: 20060501
  Serious: Yes (Hospitalization)
  Sender: FDA-Public Use
  Company Number: US-ABBOTT-05P-163-0313100-00

PATIENT
  Sex: Female
  Weight: 104.5 kg

DRUGS (3)
  1. HUMIRA [Suspect]
     Indication: RHEUMATOID ARTHRITIS
     Route: 058
     Dates: start: 20050301
  2. MELOXICAM [Concomitant]
     Indication: RHEUMATOID ARTHRITIS
     Route: 048
  3. PATONEC [Concomitant]
     Indication: GASTRIC DISORDER
     Route: 048

REACTIONS (3)
  - DIABETES MELLITUS [None]
  - PYELONEPHRITIS [None]
  - SEPSIS [None]
